FAERS Safety Report 7283302 (Version 5)
Quarter: 2014Q3

REPORT INFORMATION
  Report Type: Spontaneous
  Country: US (occurrence: US)
  Receive Date: 20091201
  Receipt Date: 20140826
  Transmission Date: 20150326
  Serious: Yes (Hospitalization, Other)
  Sender: FDA-Public Use
  Company Number: US-009507513-2009-196762-NL

PATIENT
  Sex: Female
  Weight: 52.16 kg

DRUGS (2)
  1. NUVARING [Suspect]
     Active Substance: ETHINYL ESTRADIOL\ETONOGESTREL
     Indication: CONTRACEPTION
     Dosage: CONTINUING: NO
     Route: 067
     Dates: start: 200602, end: 200706
  2. ADVIL [Concomitant]
     Active Substance: IBUPROFEN
     Indication: PAIN
     Dosage: 2 EVERY 6 HRS PRN FOR PAIN BREATHING
     Dates: start: 200706

REACTIONS (12)
  - Haemangioma of liver [Unknown]
  - Joint effusion [Unknown]
  - Haematochezia [Unknown]
  - Deep vein thrombosis [Unknown]
  - Gastritis [Unknown]
  - Exposure during pregnancy [Unknown]
  - Anxiety [Recovered/Resolved]
  - Pulmonary embolism [Recovered/Resolved]
  - Weight increased [Unknown]
  - Ovarian cyst [Unknown]
  - Musculoskeletal chest pain [Recovered/Resolved]
  - Adverse drug reaction [Unknown]

NARRATIVE: CASE EVENT DATE: 20060309
